FAERS Safety Report 24816482 (Version 1)
Quarter: 2025Q1

REPORT INFORMATION
  Report Type: Spontaneous
  Country: US (occurrence: US)
  Receive Date: 20250107
  Receipt Date: 20250107
  Transmission Date: 20250409
  Serious: No
  Sender: CALLIDITAS THERAPEUTICS AB
  Company Number: US-Calliditas-2024CAL02873

PATIENT
  Age: 52 Year
  Sex: Female

DRUGS (5)
  1. TARPEYO [Suspect]
     Active Substance: BUDESONIDE
     Indication: Proteinuria
     Route: 048
     Dates: start: 202203
  2. LOTREL [Concomitant]
     Active Substance: AMLODIPINE BESYLATE\BENAZEPRIL HYDROCHLORIDE
  3. COREG [Concomitant]
     Active Substance: CARVEDILOL
  4. JARDIANCE [Concomitant]
     Active Substance: EMPAGLIFLOZIN
  5. HYTRIN [Concomitant]
     Active Substance: TERAZOSIN HYDROCHLORIDE

REACTIONS (4)
  - Unevaluable event [Unknown]
  - Therapy interrupted [Recovered/Resolved]
  - Prescribed underdose [Unknown]
  - Immune system disorder [Unknown]

NARRATIVE: CASE EVENT DATE: 20241101
